FAERS Safety Report 16416851 (Version 1)
Quarter: 2019Q2

REPORT INFORMATION
  Report Type: Spontaneous
  Country: CN (occurrence: CN)
  Receive Date: 20190611
  Receipt Date: 20190611
  Transmission Date: 20190711
  Serious: Yes (Other)
  Sender: FDA-Public Use
  Company Number: CN-GLAXOSMITHKLINE-CN2019APC088546

PATIENT

DRUGS (1)
  1. LAMISIL [Suspect]
     Active Substance: TERBINAFINE HYDROCHLORIDE
     Indication: PRURITUS GENITAL
     Dosage: UNK

REACTIONS (8)
  - Hyperaemia [Unknown]
  - Dermatitis contact [Unknown]
  - Application site discomfort [Unknown]
  - Application site erythema [Unknown]
  - Application site swelling [Unknown]
  - Application site pain [Unknown]
  - Application site pruritus [Unknown]
  - Angioedema [Unknown]
